FAERS Safety Report 6600122-0 (Version None)
Quarter: 2010Q1

REPORT INFORMATION
  Report Type: 
  Country: None (occurrence: None)
  Receive Date: 20100224
  Receipt Date: 20100217
  Transmission Date: 20100710
  Serious: Yes (Other)
  Sender: FDA-Public Use
  Company Number: GXKR2010GB01957

PATIENT
  Age: 79 Year
  Sex: Male

DRUGS (7)
  1. DONEPEZIL HCL [Suspect]
     Indication: DEMENTIA ALZHEIMER'S TYPE
     Dosage: 5 MG/DAY
     Route: 048
     Dates: start: 20091114
  2. LAMOTRIGINE (NGX) [Suspect]
     Indication: CONVULSION
     Dosage: 25 MG/DAY
     Route: 048
     Dates: start: 20091214
  3. TEMAZEPAM (NGX) [Suspect]
     Indication: INSOMNIA
     Dosage: 20 MG/DAY
     Route: 048
     Dates: start: 20091230
  4. ZAPONEX [Suspect]
     Indication: PSYCHOTIC DISORDER
     Dosage: 12.5 MG/DAY
     Route: 048
     Dates: start: 20100118, end: 20100118
  5. ATENOLOL [Concomitant]
     Indication: CARDIAC DISORDER
     Dosage: 25 MG, QD
     Route: 048
  6. CLOPIDOGREL [Concomitant]
     Dosage: 75 MG, QD
     Route: 048
  7. LISINOPRIL [Concomitant]
     Indication: HYPERTENSION
     Dosage: 2.5 MG, QD
     Route: 048

REACTIONS (3)
  - HYPOXIA [None]
  - SOMNOLENCE [None]
  - UNRESPONSIVE TO STIMULI [None]
